FAERS Safety Report 21693284 (Version 3)
Quarter: 2022Q4

REPORT INFORMATION
  Report Type: Spontaneous
  Country: US (occurrence: US)
  Receive Date: 20221207
  Receipt Date: 20221228
  Transmission Date: 20230113
  Serious: Yes (Other)
  Sender: FDA-Public Use
  Company Number: US-BIOVITRUM-2022US14467

PATIENT

DRUGS (1)
  1. SYNAGIS [Suspect]
     Active Substance: PALIVIZUMAB
     Indication: Premature baby
     Dosage: SECOND DOSE
     Dates: start: 20221118

REACTIONS (2)
  - Conjunctival haemorrhage [Recovered/Resolved]
  - Superficial injury of eye [Recovered/Resolved]
